FAERS Safety Report 18685596 (Version 1)
Quarter: 2020Q4

REPORT INFORMATION
  Report Type: Spontaneous
  Country: US (occurrence: US)
  Receive Date: 20201230
  Receipt Date: 20201230
  Transmission Date: 20210114
  Serious: No
  Sender: FDA-Public Use
  Company Number: US-BAYER-2020-278784

PATIENT
  Sex: Female
  Weight: 113.4 kg

DRUGS (5)
  1. ALEVE [Suspect]
     Active Substance: NAPROXEN SODIUM
     Indication: OSTEOARTHRITIS
  2. ULTRAM [Suspect]
     Active Substance: TRAMADOL HYDROCHLORIDE
     Indication: OSTEOARTHRITIS
  3. TORADOL [Suspect]
     Active Substance: KETOROLAC TROMETHAMINE
     Indication: OSTEOARTHRITIS
  4. ADVIL [IBUPROFEN] [Suspect]
     Active Substance: IBUPROFEN
     Indication: OSTEOARTHRITIS
  5. TRAMADOL. [Suspect]
     Active Substance: TRAMADOL
     Indication: OSTEOARTHRITIS

REACTIONS (2)
  - Gastric disorder [None]
  - Product use in unapproved indication [None]
